FAERS Safety Report 15361648 (Version 1)
Quarter: 2018Q3

REPORT INFORMATION
  Report Type: Spontaneous
  Country: US (occurrence: US)
  Receive Date: 20180831
  Receipt Date: 20180831
  Transmission Date: 20181010
  Serious: Yes (Disabling)
  Sender: FDA-Public Use
  Company Number: None

PATIENT
  Age: 86 Year
  Sex: Female
  Weight: 65.25 kg

DRUGS (6)
  1. FLONASE [Concomitant]
     Active Substance: FLUTICASONE PROPIONATE
  2. IMDUR [Concomitant]
     Active Substance: ISOSORBIDE MONONITRATE
  3. PRAVASTATIN 80 MG TABLET COMMONLY KNOWN AS: PRAVACHOL [Suspect]
     Active Substance: PRAVASTATIN
     Indication: CARDIOVASCULAR DISORDER
     Dosage: ?          QUANTITY:1 TABLET(S);?
     Route: 048
     Dates: start: 20170331, end: 20180531
  4. FLOVENT [Concomitant]
     Active Substance: FLUTICASONE PROPIONATE
  5. FISH OIL [Concomitant]
     Active Substance: FISH OIL
  6. LOPRESSOR [Concomitant]
     Active Substance: METOPROLOL TARTRATE

REACTIONS (8)
  - Cognitive disorder [None]
  - Depression [None]
  - Crying [None]
  - Disturbance in attention [None]
  - Dementia [None]
  - Loss of personal independence in daily activities [None]
  - Quality of life decreased [None]
  - Confusional state [None]

NARRATIVE: CASE EVENT DATE: 20180315
